FAERS Safety Report 9628772 (Version 1)
Quarter: 2013Q4

REPORT INFORMATION
  Report Type: Spontaneous
  Country: US (occurrence: US)
  Receive Date: 20131017
  Receipt Date: 20131017
  Transmission Date: 20140711
  Serious: Yes (Death)
  Sender: FDA-Public Use
  Company Number: US-BAYER-2013-123712

PATIENT
  Sex: Male

DRUGS (2)
  1. XOFIGO [Suspect]
     Indication: PALLIATIVE CARE
     Dosage: 111.6 MCU
     Route: 042
     Dates: start: 20130816
  2. XOFIGO [Suspect]
     Indication: PALLIATIVE CARE
     Dosage: 110.2 MCU
     Route: 042
     Dates: start: 20130916

REACTIONS (1)
  - Malignant neoplasm progression [Fatal]
